FAERS Safety Report 22931258 (Version 3)
Quarter: 2024Q1

REPORT INFORMATION
  Report Type: Spontaneous
  Country: JP (occurrence: JP)
  Receive Date: 20230911
  Receipt Date: 20240111
  Transmission Date: 20240410
  Serious: Yes (Death, Hospitalization, Other)
  Sender: FDA-Public Use
  Company Number: JP-PFIZER INC-202300294619

PATIENT
  Age: 52 Year
  Sex: Male
  Weight: 60 kg

DRUGS (8)
  1. PAXLOVID [Interacting]
     Active Substance: NIRMATRELVIR\RITONAVIR
     Indication: COVID-19 treatment
     Dosage: NIRMATRELVIR 150 MG/RITONAVIR 100 MG DIVIDED INTO 2, AFTER BREAKFAST AND DINNER, FOR 5 DAYS
     Route: 048
     Dates: start: 20230823, end: 20230828
  2. PROGRAF [Interacting]
     Active Substance: TACROLIMUS
     Indication: Myasthenia gravis
     Dosage: 3 MG, DAILY
     Route: 048
     Dates: start: 20051201, end: 20230828
  3. ACETAMINOPHEN [Concomitant]
     Active Substance: ACETAMINOPHEN
     Dosage: 400 MG (200 MG X 2 TABLETS), AS NEEDED (WHEN A PAIN OCCURRED)
     Route: 048
     Dates: start: 20230823, end: 20230825
  4. VONOPRAZAN FUMARATE [Concomitant]
     Active Substance: VONOPRAZAN FUMARATE
     Dosage: 10 MG (1 TABLET), DAILY
     Route: 048
     Dates: start: 20221122, end: 20230828
  5. ESZOPICLONE [Concomitant]
     Active Substance: ESZOPICLONE
     Dosage: 2 MG, DAILY
     Route: 048
     Dates: start: 20161202, end: 20230828
  6. ACETAMINOPHEN [Concomitant]
     Active Substance: ACETAMINOPHEN
     Dosage: 1000 MG/TIME
     Route: 042
     Dates: start: 20230825, end: 20230828
  7. PIPERACILLIN SODIUM\TAZOBACTAM SODIUM [Concomitant]
     Active Substance: PIPERACILLIN SODIUM\TAZOBACTAM SODIUM
     Dosage: 4.5 G/TIME, 3X/DAY
     Route: 042
     Dates: start: 20230823, end: 20230828
  8. LANSOPRAZOLE [Concomitant]
     Active Substance: LANSOPRAZOLE
     Dosage: 30 MG/TIME
     Route: 042
     Dates: start: 20230825, end: 20230902

REACTIONS (14)
  - Acute hepatic failure [Fatal]
  - Renal impairment [Fatal]
  - Hepatitis fulminant [Unknown]
  - Platelet count decreased [Unknown]
  - Coagulation time prolonged [Unknown]
  - Fibrin degradation products increased [Unknown]
  - Fibrin D dimer increased [Unknown]
  - Disseminated intravascular coagulation [Unknown]
  - Drug interaction [Not Recovered/Not Resolved]
  - Drug level increased [Not Recovered/Not Resolved]
  - Headache [Unknown]
  - Diarrhoea [Unknown]
  - Abdominal pain [Unknown]
  - Off label use [Unknown]

NARRATIVE: CASE EVENT DATE: 20230823
